FAERS Safety Report 8720844 (Version 2)
Quarter: 2013Q1

REPORT INFORMATION
  Report Type: Spontaneous
  Country: FR (occurrence: FR)
  Receive Date: 20120813
  Receipt Date: 20130205
  Transmission Date: 20140127
  Serious: Yes (Death, Hospitalization, Other)
  Sender: FDA-Public Use
  Company Number: FR-BRISTOL-MYERS SQUIBB COMPANY-16836280

PATIENT
  Age: 50 Year
  Sex: Male

DRUGS (8)
  1. COUMADIN TABS 5 MG [Suspect]
     Indication: ATRIAL FIBRILLATION
     Dosage: SCORED TABS. INTERRUPTED ON 20JUN12, RESUMED FROM 23JUN-2JUL12
     Route: 048
     Dates: start: 201112
  2. SPIRONOLACTONE [Concomitant]
     Dosage: FORM: SPIRONOLACTONE 50
  3. PROCORALAN [Concomitant]
     Dosage: 1 DF= 1.5 UNITNOS. FORM: PROCORALAN 5
  4. ALPHACALCIDOL [Concomitant]
  5. ZOLPIDEM [Concomitant]
  6. FUROSEMIDE [Concomitant]
     Dosage: 1 DF= 4 TABS. FORM: 20
  7. KARDEGIC [Concomitant]
     Dosage: FORM: KARDEGIC 75
  8. RAMIPRIL [Concomitant]
     Dosage: FORM:5MG

REACTIONS (8)
  - Death [Fatal]
  - Epistaxis [Recovered/Resolved]
  - International normalised ratio increased [Recovered/Resolved]
  - Anaemia [Not Recovered/Not Resolved]
  - Faeces discoloured [Unknown]
  - Oedema peripheral [Unknown]
  - Sepsis [Unknown]
  - Fall [Unknown]
